FAERS Safety Report 6567328-0 (Version None)
Quarter: 2010Q1

REPORT INFORMATION
  Report Type: 
  Country: None (occurrence: None)
  Receive Date: 20100202
  Receipt Date: 20100121
  Transmission Date: 20100710
  Serious: Yes (Other)
  Sender: FDA-Public Use
  Company Number: PHHY2010IE03369

PATIENT
  Age: 55 Year
  Sex: Male

DRUGS (2)
  1. RASILEZ [Suspect]
     Route: 065
  2. GLUCOPHAGE [Concomitant]
     Dosage: 1000 MG
     Route: 065

REACTIONS (1)
  - PROTEIN TOTAL INCREASED [None]
